FAERS Safety Report 23699070 (Version 1)
Quarter: 2024Q2

REPORT INFORMATION
  Report Type: Spontaneous
  Country: US (occurrence: US)
  Receive Date: 20240402
  Receipt Date: 20240402
  Transmission Date: 20240715
  Serious: Yes (Other)
  Sender: FDA-Public Use
  Company Number: US-PFIZER INC-PV202400042531

PATIENT
  Age: 68 Year
  Sex: Female
  Weight: 76.7 kg

DRUGS (4)
  1. IBRANCE [Suspect]
     Active Substance: PALBOCICLIB
     Indication: Breast cancer metastatic
     Dosage: 125 MG DAILY
     Route: 048
     Dates: start: 20150324
  2. IBRANCE [Suspect]
     Active Substance: PALBOCICLIB
     Dosage: 100 MG DAY 1-21
     Route: 048
     Dates: start: 20150831
  3. IBRANCE [Suspect]
     Active Substance: PALBOCICLIB
     Dosage: 75 MG DALLY 21 DAYS + THEN 7 DAYS OFF
     Route: 048
     Dates: start: 20151105
  4. LETROZOLE [Concomitant]
     Active Substance: LETROZOLE
     Indication: Breast cancer metastatic
     Dosage: 2.5 MG DAILY
     Route: 048

REACTIONS (1)
  - Neutropenia [Not Recovered/Not Resolved]
